FAERS Safety Report 5060708-4 (Version None)
Quarter: 2006Q3

REPORT INFORMATION
  Report Type: 
  Country: None (occurrence: None)
  Receive Date: 20060720
  Receipt Date: 20060720
  Transmission Date: 20061208
  Serious: Yes (Hospitalization, Other)
  Sender: FDA-Public Use
  Company Number: None

PATIENT
  Age: 49 Year
  Sex: Male
  Weight: 117.9352 kg

DRUGS (3)
  1. CLONAZEPAM [Suspect]
     Indication: ANXIETY
     Dosage: 1 MG 3 X DAY ORAL
     Route: 048
     Dates: start: 20060412, end: 20060710
  2. SYNTHROID [Concomitant]
  3. TOPROL-XL [Concomitant]

REACTIONS (3)
  - DRUG INEFFECTIVE [None]
  - PALPITATIONS [None]
  - PHARMACEUTICAL PRODUCT COMPLAINT [None]
